FAERS Safety Report 7929027-X (Version None)
Quarter: 2011Q4

REPORT INFORMATION
  Report Type: 
  Country: None (occurrence: None)
  Receive Date: 20111118
  Receipt Date: 20111115
  Transmission Date: 20120403
  Serious: Yes (Death, Other)
  Sender: FDA-Public Use
  Company Number: CN-ROCHE-1013439

PATIENT

DRUGS (3)
  1. PREDNISONE TAB [Concomitant]
     Indication: RENAL TRANSPLANT
  2. MIZORIBINE [Concomitant]
     Indication: RENAL TRANSPLANT
     Route: 048
  3. MYCOPHENOLATE MOFETIL (CELLCEPT) [Suspect]
     Indication: RENAL TRANSPLANT

REACTIONS (3)
  - LUNG INFECTION [None]
  - RESPIRATORY FAILURE [None]
  - CARDIAC FAILURE [None]
